FAERS Safety Report 19945221 (Version 1)
Quarter: 2021Q4

REPORT INFORMATION
  Report Type: Report from Study
  Country: TH (occurrence: TH)
  Receive Date: 20211012
  Receipt Date: 20211012
  Transmission Date: 20220303
  Serious: Yes (Other)
  Sender: FDA-Public Use
  Company Number: TH-SA-SAC20211006001095

PATIENT
  Age: 28 Year
  Sex: Female

DRUGS (5)
  1. RIFAPENTINE [Suspect]
     Active Substance: RIFAPENTINE
     Indication: Tuberculosis
     Dosage: 900 MG, QW
     Route: 048
     Dates: start: 20210804, end: 20210929
  2. ISONIAZID [Suspect]
     Active Substance: ISONIAZID
     Indication: Tuberculosis
     Dosage: 900 MG, QW
     Route: 048
     Dates: start: 20210804, end: 20210929
  3. EFAVIRENZ + EMTRICITABINE + TENOFOVIR [EFAVIRENZ;EMTRICITABINE;TENOFOV [Concomitant]
     Indication: HIV infection
     Dosage: 300 MG, QD
     Route: 048
     Dates: start: 20180914
  4. EFAVIRENZ + EMTRICITABINE + TENOFOVIR [EFAVIRENZ;EMTRICITABINE;TENOFOV [Concomitant]
     Indication: Antiretroviral therapy
  5. PYRIDOXINE [Concomitant]
     Active Substance: PYRIDOXINE
     Indication: Supplementation therapy
     Dosage: 50 MG, QW
     Route: 048
     Dates: start: 20210804, end: 20210929

REACTIONS (7)
  - Hepatitis [Recovered/Resolved]
  - Drug hypersensitivity [Recovered/Resolved]
  - Nausea [Recovered/Resolved]
  - Vomiting [Recovered/Resolved]
  - Pyrexia [Recovered/Resolved]
  - Conjunctivitis [Recovered/Resolved]
  - Dyspnoea [Recovered/Resolved]

NARRATIVE: CASE EVENT DATE: 20210915
